FAERS Safety Report 8160494-5 (Version None)
Quarter: 2012Q1

REPORT INFORMATION
  Report Type: 
  Country: None (occurrence: None)
  Receive Date: 20120223
  Receipt Date: 20120215
  Transmission Date: 20120608
  Serious: No
  Sender: FDA-Public Use
  Company Number: US-BAYER-2012-016526

PATIENT

DRUGS (1)
  1. NAPROXEN (ALEVE) [Suspect]
     Route: 048

REACTIONS (1)
  - ABDOMINAL PAIN UPPER [None]
